FAERS Safety Report 5602226-8 (Version None)
Quarter: 2008Q1

REPORT INFORMATION
  Report Type: 
  Country: None (occurrence: None)
  Receive Date: 20080125
  Receipt Date: 20080123
  Transmission Date: 20080703
  Serious: Yes (Hospitalization, Other)
  Sender: FDA-Public Use
  Company Number: PHNU2007DE04245

PATIENT
  Age: 71 Year
  Sex: Male
  Weight: 81.5 kg

DRUGS (10)
  1. RASILEZ [Suspect]
     Indication: HYPERTENSION
     Dosage: 300 MG, QD
     Route: 048
     Dates: start: 20071001, end: 20071219
  2. CARMEN [Concomitant]
     Indication: HYPERTENSION
     Dosage: 10 MG, BID
     Route: 048
     Dates: start: 20070801
  3. NEBILET [Concomitant]
     Indication: HYPERTENSION
     Dosage: 2.5 MG, QD
     Route: 048
     Dates: start: 20070801
  4. ATACAND [Concomitant]
     Route: 065
  5. INDAPAMIDE [Concomitant]
     Route: 065
  6. FERROUS SULFATE [Concomitant]
     Route: 065
  7. VITAMIN D [Concomitant]
     Route: 065
  8. ARANESP [Concomitant]
     Indication: ANAEMIA
     Dosage: 150 UG, QMO
     Route: 058
     Dates: start: 20071029
  9. BONDIOL [Concomitant]
     Indication: HYPERPARATHYROIDISM SECONDARY
     Dosage: 1 UG, QW3
     Route: 048
     Dates: start: 20071029
  10. FERRLECIT FOR INJECTION [Concomitant]
     Indication: ANAEMIA
     Dosage: 62.5 UG, QW
     Route: 042
     Dates: start: 20071218

REACTIONS (10)
  - ALANINE AMINOTRANSFERASE INCREASED [None]
  - ANAEMIA [None]
  - ASPARTATE AMINOTRANSFERASE INCREASED [None]
  - BLOOD ALKALINE PHOSPHATASE INCREASED [None]
  - DIALYSIS [None]
  - GAMMA-GLUTAMYLTRANSFERASE INCREASED [None]
  - HEPATIC ENZYME INCREASED [None]
  - HYPERPARATHYROIDISM SECONDARY [None]
  - POST PROCEDURAL HAEMORRHAGE [None]
  - TRANSURETHRAL PROSTATECTOMY [None]
